FAERS Safety Report 7770783-1 (Version None)
Quarter: 2011Q3

REPORT INFORMATION
  Report Type: 
  Country: None (occurrence: None)
  Receive Date: 20110922
  Receipt Date: 20100915
  Transmission Date: 20111222
  Serious: Yes (Other)
  Sender: FDA-Public Use
  Company Number: US-ASTRAZENECA-2009UW09920

PATIENT
  Age: 5 Year
  Sex: Male
  Weight: 36.3 kg

DRUGS (3)
  1. RISPERDAL [Concomitant]
     Dates: start: 20050501
  2. SEROQUEL [Suspect]
     Indication: BIPOLAR DISORDER
     Route: 048
     Dates: start: 20041201, end: 20050501
  3. DEPAKOTE [Concomitant]
     Dates: start: 20080101

REACTIONS (3)
  - TYPE 1 DIABETES MELLITUS [None]
  - GASTROOESOPHAGEAL REFLUX DISEASE [None]
  - DIABETIC KETOACIDOSIS [None]
